FAERS Safety Report 17981602 (Version 2)
Quarter: 2025Q3

REPORT INFORMATION
  Report Type: Spontaneous
  Country: EU (occurrence: EU)
  Receive Date: 20200706
  Receipt Date: 20250828
  Transmission Date: 20251021
  Serious: Yes (Death, Hospitalization, Other)
  Sender: AUROBINDO
  Company Number: EU-EMA-DD-20200625-GONUGUNTLA_N1-103415

PATIENT
  Age: 58 Year
  Sex: Female

DRUGS (2)
  1. VORICONAZOLE [Suspect]
     Active Substance: VORICONAZOLE
     Indication: Aspergillus infection
     Route: 065
  2. PREDNISOLONE [Suspect]
     Active Substance: PREDNISOLONE
     Indication: Autoimmune hepatitis
     Dosage: 1 MILLIGRAM/KILOGRAM, ONCE A DAY
     Route: 065

REACTIONS (8)
  - Ruptured cerebral aneurysm [Fatal]
  - Aspergillus test [Fatal]
  - Altered state of consciousness [Fatal]
  - Subarachnoid haemorrhage [Fatal]
  - Pyrexia [Fatal]
  - Aspergillus infection [Fatal]
  - Infective aneurysm [Fatal]
  - Drug ineffective [Unknown]
